FAERS Safety Report 7806523-7 (Version None)
Quarter: 2011Q4

REPORT INFORMATION
  Report Type: 
  Country: None (occurrence: None)
  Receive Date: 20111011
  Receipt Date: 20111006
  Transmission Date: 20120403
  Serious: Yes (Death, Other)
  Sender: FDA-Public Use
  Company Number: US-AMGEN-USASP2010004264

PATIENT
  Age: 55 Year
  Sex: Male
  Weight: 112.47 kg

DRUGS (13)
  1. NEURONTIN [Concomitant]
     Dosage: 300 MG, BID
     Route: 048
  2. ZOCOR [Concomitant]
     Dosage: 40 MG, QD
     Route: 048
  3. DIAZEPAM [Concomitant]
     Indication: ANXIETY
     Dosage: 10 MG, PRN
     Route: 048
  4. POTASSIUM CHLORIDE [Concomitant]
     Dosage: 10 MEQ, QD
     Route: 048
  5. LISINOPRIL [Concomitant]
     Dosage: 10 MG, QD
     Route: 048
  6. FERROUS SULFATE TAB [Concomitant]
     Dosage: 325 MG, TID
     Route: 048
  7. FUROSEMIDE [Concomitant]
     Dosage: 40 MG, UNK
     Route: 048
  8. RESTASIS [Concomitant]
  9. VITAMIN D [Concomitant]
     Dosage: 50000 UNIT, UNK
     Route: 048
  10. NPLATE [Suspect]
     Indication: IDIOPATHIC THROMBOCYTOPENIC PURPURA
     Dosage: 7 MUG/KG, QWK
     Route: 058
     Dates: start: 20081105, end: 20101013
  11. LOTEPREDNOL ETABONATE [Concomitant]
  12. METOPROLOL TARTRATE [Concomitant]
     Dosage: 25 MG, QOD
     Route: 048
  13. ACETAMINOPHEN AND HYDROCODONE BITARTRATE [Concomitant]
     Dosage: UNK
     Route: 048

REACTIONS (8)
  - HEPATIC CIRRHOSIS [None]
  - MYOCARDIAL INFARCTION [None]
  - ASTHENIA [None]
  - COLON ADENOMA [None]
  - AORTIC ANEURYSM [None]
  - GASTRITIS EROSIVE [None]
  - CARDIO-RESPIRATORY ARREST [None]
  - IRON DEFICIENCY ANAEMIA [None]
